FAERS Safety Report 13191685 (Version 1)
Quarter: 2017Q1

REPORT INFORMATION
  Report Type: Spontaneous
  Country: US (occurrence: US)
  Receive Date: 20170206
  Receipt Date: 20170206
  Transmission Date: 20170428
  Serious: Yes (Disabling)
  Sender: FDA-Public Use
  Company Number: None

PATIENT
  Age: 49 Year
  Sex: Male
  Weight: 81 kg

DRUGS (5)
  1. PROBIOTIC [Concomitant]
     Active Substance: PROBIOTICS NOS
  2. LEVOFLOXACIN. [Suspect]
     Active Substance: LEVOFLOXACIN
     Indication: DIVERTICULITIS
     Dosage: ?          QUANTITY:10 TABLET(S);?
     Route: 048
     Dates: start: 20170128, end: 20170130
  3. METOPROLOL. [Concomitant]
     Active Substance: METOPROLOL
  4. CONTROIDTEN [Concomitant]
  5. CLONAZEPAM. [Concomitant]
     Active Substance: CLONAZEPAM

REACTIONS (12)
  - Arthralgia [None]
  - Asthenia [None]
  - Confusional state [None]
  - Insomnia [None]
  - Heart rate increased [None]
  - Feeling abnormal [None]
  - Dizziness [None]
  - Urticaria [None]
  - Neck pain [None]
  - Activities of daily living impaired [None]
  - Back pain [None]
  - Tendon pain [None]

NARRATIVE: CASE EVENT DATE: 20170128
